FAERS Safety Report 9189193 (Version 1)
Quarter: 2013Q1

REPORT INFORMATION
  Report Type: Spontaneous
  Country: US (occurrence: None)
  Receive Date: 20130325
  Receipt Date: 20130325
  Transmission Date: 20140127
  Serious: Yes (Death, Life-Threatening, Hospitalization)
  Sender: FDA-Public Use
  Company Number: None

PATIENT
  Age: 74 Year
  Sex: Female
  Weight: 88.8 kg

DRUGS (2)
  1. XARELTO [Suspect]
     Indication: CEREBROVASCULAR ACCIDENT PROPHYLAXIS
     Dosage: 20MG DAILY WITH DINNER PO
     Dates: start: 20130218, end: 20130222
  2. XARELTO [Suspect]
     Indication: ATRIAL FIBRILLATION
     Dosage: 20MG DAILY WITH DINNER PO
     Dates: start: 20130218, end: 20130222

REACTIONS (7)
  - Unresponsive to stimuli [None]
  - Intraventricular haemorrhage [None]
  - Cerebral infarction [None]
  - Brain herniation [None]
  - Subdural haematoma [None]
  - Blood pressure decreased [None]
  - Brain death [None]
